FAERS Safety Report 10978649 (Version 1)
Quarter: 2015Q2

REPORT INFORMATION
  Report Type: Spontaneous
  Country: US (occurrence: US)
  Receive Date: 20150402
  Receipt Date: 20150402
  Transmission Date: 20150821
  Serious: Yes (Hospitalization, Other)
  Sender: FDA-Public Use
  Company Number: US-ACTAVIS-2015-06576

PATIENT
  Age: 35 Month
  Sex: Female

DRUGS (2)
  1. VINCRISTINE (UNKNOWN) [Suspect]
     Active Substance: VINCRISTINE
     Indication: OPTIC GLIOMA
     Dosage: 1.5 MG/M2, 1/WEEK
     Route: 065
  2. CARBOPLATIN (WATSON LABORATORIES) [Suspect]
     Active Substance: CARBOPLATIN
     Indication: OPTIC GLIOMA
     Dosage: 175 MG/M2, 1/WEEK
     Route: 065

REACTIONS (1)
  - Haemolytic anaemia [Recovered/Resolved]
